FAERS Safety Report 16477655 (Version 2)
Quarter: 2019Q3

REPORT INFORMATION
  Report Type: Spontaneous
  Country: US (occurrence: US)
  Receive Date: 20190626
  Receipt Date: 20190730
  Transmission Date: 20191004
  Serious: Yes (Other)
  Sender: FDA-Public Use
  Company Number: US-HORIZON-KRY-PRE-0431-2019

PATIENT
  Age: 56 Year
  Sex: Male

DRUGS (2)
  1. KRYSTEXXA [Suspect]
     Active Substance: PEGLOTICASE
     Indication: GOUTY ARTHRITIS
     Dosage: 8 MG IV OVER 2 HOURS Q 2 WEEKS
     Dates: start: 20190503, end: 20190614
  2. PREDNISONE. [Suspect]
     Active Substance: PREDNISONE
     Indication: PRODUCT USED FOR UNKNOWN INDICATION

REACTIONS (3)
  - Aggression [Unknown]
  - Verbal abuse [Unknown]
  - Paranoia [Unknown]

NARRATIVE: CASE EVENT DATE: 20190619
